FAERS Safety Report 17860140 (Version 2)
Quarter: 2020Q2

REPORT INFORMATION
  Report Type: Spontaneous
  Country: US (occurrence: US)
  Receive Date: 20200604
  Receipt Date: 20200615
  Transmission Date: 20200714
  Serious: No
  Sender: FDA-Public Use
  Company Number: US-GW PHARMA-202006USGW01985

PATIENT

DRUGS (1)
  1. EPIDIOLEX [Suspect]
     Active Substance: CANNABIDIOL
     Indication: LENNOX-GASTAUT SYNDROME
     Dosage: 170 MG
     Dates: start: 20191001

REACTIONS (2)
  - Constipation [Not Recovered/Not Resolved]
  - Incorrect route of product administration [Not Recovered/Not Resolved]

NARRATIVE: CASE EVENT DATE: 20191001
